FAERS Safety Report 21735731 (Version 1)
Quarter: 2022Q4

REPORT INFORMATION
  Report Type: Spontaneous
  Country: US (occurrence: US)
  Receive Date: 20221215
  Receipt Date: 20221215
  Transmission Date: 20230113
  Serious: No
  Sender: FDA-Public Use
  Company Number: US-009507513-2211USA005153

PATIENT
  Sex: Female

DRUGS (3)
  1. BELSOMRA [Suspect]
     Active Substance: SUVOREXANT
     Indication: Insomnia
     Dosage: 20 MG / ONCE DAILY
     Route: 048
     Dates: start: 2022
  2. BELSOMRA [Suspect]
     Active Substance: SUVOREXANT
     Dosage: 10MG X 1.5 / ONCE DAILY
     Route: 048
     Dates: start: 2022, end: 2022
  3. BELSOMRA [Suspect]
     Active Substance: SUVOREXANT
     Dosage: 10MG / ONCE DAILY
     Route: 048
     Dates: start: 202209, end: 2022

REACTIONS (3)
  - Mania [Not Recovered/Not Resolved]
  - Libido increased [Not Recovered/Not Resolved]
  - Drug ineffective [Unknown]

NARRATIVE: CASE EVENT DATE: 20220101
